FAERS Safety Report 25093853 (Version 4)
Quarter: 2025Q2

REPORT INFORMATION
  Report Type: Spontaneous
  Country: US (occurrence: US)
  Receive Date: 20250319
  Receipt Date: 20250507
  Transmission Date: 20250717
  Serious: Yes (Other)
  Sender: BAYER HEALTHCARE PHARMACEUTICALS INC.
  Company Number: US-BAYER-2025A034130

PATIENT
  Age: 30 Year
  Sex: Female

DRUGS (1)
  1. MIRENA [Suspect]
     Active Substance: LEVONORGESTREL
     Indication: Contraception
     Dosage: 20?G/DAY
     Route: 015
     Dates: start: 202301, end: 20250306

REACTIONS (19)
  - Embedded device [None]
  - Device breakage [None]
  - Device dislocation [Recovered/Resolved]
  - Device expulsion [Recovered/Resolved]
  - Abdominal pain lower [Recovering/Resolving]
  - Complication of device removal [None]
  - Procedural pain [Recovering/Resolving]
  - Presyncope [None]
  - Complication of device removal [None]
  - Sick leave [None]
  - Post procedural complication [None]
  - Scar [None]
  - Stress [None]
  - Abdominal discomfort [None]
  - Dizziness [None]
  - Procedural pain [None]
  - Feeling abnormal [None]
  - Procedural pain [None]
  - Injury [None]

NARRATIVE: CASE EVENT DATE: 20250101
